FAERS Safety Report 7604955-3 (Version None)
Quarter: 2011Q3

REPORT INFORMATION
  Report Type: 
  Country: None (occurrence: None)
  Receive Date: 20110713
  Receipt Date: 20090717
  Transmission Date: 20111222
  Serious: No
  Sender: FDA-Public Use
  Company Number: US-BIOGENIDEC-2009BI001600

PATIENT
  Sex: Female

DRUGS (3)
  1. TYSABRI [Suspect]
     Indication: MULTIPLE SCLEROSIS
     Route: 042
     Dates: start: 20080812, end: 20090201
  2. AVONEX [Concomitant]
     Indication: MULTIPLE SCLEROSIS
     Route: 030
  3. TYSABRI [Suspect]
     Route: 042
     Dates: start: 20090401

REACTIONS (28)
  - TENDONITIS [None]
  - MOBILITY DECREASED [None]
  - URINARY INCONTINENCE [None]
  - DISTURBANCE IN ATTENTION [None]
  - ATAXIA [None]
  - VISION BLURRED [None]
  - FEELING HOT [None]
  - IMPATIENCE [None]
  - HEARING IMPAIRED [None]
  - DYSPHEMIA [None]
  - IRRITABLE BOWEL SYNDROME [None]
  - BUNION [None]
  - DIPLOPIA [None]
  - AMNESIA [None]
  - DERMATITIS [None]
  - ARTHRITIS [None]
  - POST-TRAUMATIC STRESS DISORDER [None]
  - MIGRAINE [None]
  - COGNITIVE DISORDER [None]
  - GASTROOESOPHAGEAL REFLUX DISEASE [None]
  - PARAESTHESIA [None]
  - FEELING COLD [None]
  - BALANCE DISORDER [None]
  - MAJOR DEPRESSION [None]
  - SPEECH DISORDER [None]
  - DEPRESSION [None]
  - FAECAL INCONTINENCE [None]
  - BURSITIS [None]
